FAERS Safety Report 20814637 (Version 1)
Quarter: 2022Q2

REPORT INFORMATION
  Report Type: Spontaneous
  Country: US (occurrence: None)
  Receive Date: 20220511
  Receipt Date: 20220511
  Transmission Date: 20220721
  Serious: No
  Sender: FDA-Public Use
  Company Number: 2022A164647

PATIENT
  Sex: Female
  Weight: 61.5 kg

DRUGS (2)
  1. LYNPARZA [Suspect]
     Active Substance: OLAPARIB
     Route: 048
  2. IBRANCE [Suspect]
     Active Substance: PALBOCICLIB
     Dosage: TAKE 1 TABLET DAILY ON DAYS 1 THROUGH 21 OF EACH 28 DAY CYCLE.
     Route: 048
     Dates: start: 20220406

REACTIONS (4)
  - Platelet count decreased [Unknown]
  - Red blood cell count decreased [Unknown]
  - Asthenia [Unknown]
  - Drug ineffective [Unknown]
